FAERS Safety Report 20175695 (Version 1)
Quarter: 2021Q4

REPORT INFORMATION
  Report Type: Spontaneous
  Country: US (occurrence: None)
  Receive Date: 20211209
  Receipt Date: 20211209
  Transmission Date: 20220303
  Serious: Yes (Other)
  Sender: FDA-Public Use
  Company Number: None

PATIENT
  Age: 42 Year
  Sex: Male
  Weight: 99 kg

DRUGS (9)
  1. BUSPIRONE HCL [Suspect]
     Active Substance: BUSPIRONE HYDROCHLORIDE
     Indication: Anxiety
     Dosage: FREQUENCY : TWICE A DAY;?
     Route: 048
  2. OLANZAPINE [Concomitant]
     Active Substance: OLANZAPINE
  3. BUSPAR [Concomitant]
     Active Substance: BUSPIRONE HYDROCHLORIDE
  4. DEPAKOTE [Concomitant]
     Active Substance: DIVALPROEX SODIUM
  5. CANNABIDIOL [Concomitant]
     Active Substance: CANNABIDIOL
  6. Testro x [Concomitant]
  7. Flouracil 50 [Concomitant]
  8. Zoopoo [Concomitant]
  9. Redwood [Concomitant]

REACTIONS (4)
  - Asthenia [None]
  - Fatigue [None]
  - Hypersomnia [None]
  - Depression [None]

NARRATIVE: CASE EVENT DATE: 20180501
